FAERS Safety Report 11351128 (Version 1)
Quarter: 2015Q3

REPORT INFORMATION
  Report Type: Spontaneous
  Country: US (occurrence: None)
  Receive Date: 20150806
  Receipt Date: 20150806
  Transmission Date: 20151125
  Serious: Yes (Life-Threatening, Hospitalization, Other)
  Sender: FDA-Public Use
  Company Number: None

PATIENT
  Age: 68 Year
  Sex: Female
  Weight: 58.06 kg

DRUGS (8)
  1. NPH INSULIN [Concomitant]
     Active Substance: INSULIN BEEF
  2. DIGOXIN. [Concomitant]
     Active Substance: DIGOXIN
  3. ATARAX [Concomitant]
     Active Substance: HYDROXYZINE\HYDROXYZINE HYDROCHLORIDE
  4. RIVAVIRIN (RIBAVIRIN) [Concomitant]
     Active Substance: RIBAVIRIN
  5. GLIPIZIDE. [Concomitant]
     Active Substance: GLIPIZIDE
  6. AMLODIPINE [Concomitant]
     Active Substance: AMLODIPINE BESYLATE
  7. PANTOPRAZOLE [Concomitant]
     Active Substance: PANTOPRAZOLE SODIUM
  8. HARVONI [Suspect]
     Active Substance: LEDIPASVIR\SOFOSBUVIR
     Indication: HEPATITIS C
     Dosage: 1 DAILY X 12 WEEKS QD ORAL
     Route: 048
     Dates: start: 20150630, end: 20150724

REACTIONS (3)
  - Anaemia [None]
  - Atrioventricular block second degree [None]
  - Pericarditis [None]

NARRATIVE: CASE EVENT DATE: 20150721
